FAERS Safety Report 9749913 (Version 2)
Quarter: 2014Q2

REPORT INFORMATION
  Report Type: Spontaneous
  Country: US (occurrence: US)
  Receive Date: 20131212
  Receipt Date: 20140515
  Transmission Date: 20141212
  Serious: Yes (Hospitalization)
  Sender: FDA-Public Use
  Company Number: US-BAYER-2013-151168

PATIENT
  Age: 24 Year
  Sex: Female
  Weight: 77.1 kg

DRUGS (4)
  1. OCELLA [Suspect]
     Dosage: UNK
     Dates: start: 200904, end: 201201
  2. YASMIN [Suspect]
     Dosage: UNK
     Dates: start: 200708, end: 200802
  3. AMOXICILLIN W/CLAVULANATE POTASSIUM [Concomitant]
     Dosage: 875 MG, UNK
  4. ASPIRIN [Concomitant]

REACTIONS (1)
  - Cerebrovascular accident [None]
